FAERS Safety Report 4730026-X (Version None)
Quarter: 2005Q3

REPORT INFORMATION
  Report Type: 
  Country: None (occurrence: None)
  Receive Date: 20050728
  Receipt Date: 20050728
  Transmission Date: 20060218
  Serious: Yes (Life-Threatening, Hospitalization)
  Sender: FDA-Public Use
  Company Number: None

PATIENT
  Sex: Male
  Weight: 102 kg

DRUGS (9)
  1. GEMCITABINE 675MG/M2  LILLY PHARMACEUTICALS [Suspect]
     Indication: EWING'S SARCOMA METASTATIC
     Dosage: 675MG/M2  IV
     Route: 042
     Dates: start: 20050621
  2. GEMCITABINE 675MG/M2  LILLY PHARMACEUTICALS [Suspect]
     Indication: EWING'S SARCOMA METASTATIC
     Dosage: 675MG/M2  IV
     Route: 042
     Dates: start: 20050628
  3. GEMCITABINE 675MG/M2  LILLY PHARMACEUTICALS [Suspect]
     Indication: EWING'S SARCOMA METASTATIC
     Dosage: 675MG/M2  IV
     Route: 042
     Dates: start: 20050712
  4. GEMCITABINE 675MG/M2  LILLY PHARMACEUTICALS [Suspect]
     Indication: EWING'S SARCOMA METASTATIC
     Dosage: 675MG/M2  IV
     Route: 042
     Dates: start: 20050719
  5. DOCETAXEL 75MG/M2 AVENTIS PHARMACEUTICALS [Suspect]
     Indication: EWING'S SARCOMA METASTATIC
     Dosage: 75 MG/M2 IV
     Route: 042
     Dates: start: 20050628
  6. DOCETAXEL 75MG/M2 AVENTIS PHARMACEUTICALS [Suspect]
     Indication: EWING'S SARCOMA METASTATIC
     Dosage: 75 MG/M2 IV
     Route: 042
     Dates: start: 20050719
  7. PEGFILGRASTIM [Concomitant]
  8. DECADRON [Concomitant]
  9. DOXYCYCLINE [Concomitant]

REACTIONS (7)
  - ANXIETY [None]
  - CATHETER RELATED INFECTION [None]
  - DIARRHOEA [None]
  - ESCHERICHIA BACTERAEMIA [None]
  - HYPOTENSION [None]
  - MALAISE [None]
  - VOMITING [None]
